FAERS Safety Report 14756762 (Version 1)
Quarter: 2018Q2

REPORT INFORMATION
  Report Type: Spontaneous
  Country: US (occurrence: US)
  Receive Date: 20180413
  Receipt Date: 20180413
  Transmission Date: 20180711
  Serious: No
  Sender: FDA-Public Use
  Company Number: US-BION-006507

PATIENT
  Age: 78 Year
  Sex: Female
  Weight: 65 kg

DRUGS (4)
  1. SYNTHROID [Concomitant]
     Active Substance: LEVOTHYROXINE SODIUM
  2. ALEVE EASY OPEN ARTHRITIS CAP [Suspect]
     Active Substance: NAPROXEN SODIUM
     Indication: PAIN
     Dosage: RECEIVED 2 DOSE
     Route: 048
  3. IMITREX [Concomitant]
     Active Substance: SUMATRIPTAN SUCCINATE
  4. METORMIN [Concomitant]
     Active Substance: METFORMIN HYDROCHLORIDE

REACTIONS (1)
  - Nausea [Recovered/Resolved]
